FAERS Safety Report 4961679-9 (Version None)
Quarter: 2006Q2

REPORT INFORMATION
  Report Type: 
  Country: None (occurrence: None)
  Receive Date: 20060404
  Receipt Date: 20060216
  Transmission Date: 20061013
  Serious: Yes (Hospitalization)
  Sender: FDA-Public Use
  Company Number: PHEH2006US02235

PATIENT
  Age: 70 Year
  Sex: Male
  Weight: 78.911 kg

DRUGS (7)
  1. DIGITEK [Concomitant]
  2. METFORMIN [Concomitant]
  3. LISINOPRIL [Concomitant]
  4. PANTOPRAZOLE [Concomitant]
  5. LASIX [Concomitant]
  6. COREG [Concomitant]
  7. EXJADE [Suspect]
     Indication: BLOOD PRODUCT TRANSFUSION
     Dosage: 500 MG, TID
     Route: 048
     Dates: start: 20060126, end: 20060207

REACTIONS (20)
  - BLOOD ALBUMIN DECREASED [None]
  - BLOOD BILIRUBIN INCREASED [None]
  - BLOOD CREATININE INCREASED [None]
  - BLOOD GLUCOSE ABNORMAL [None]
  - BLOOD GLUCOSE INCREASED [None]
  - BLOOD UREA ABNORMAL [None]
  - BLOOD URINE PRESENT [None]
  - BRAIN NATRIURETIC PEPTIDE ABNORMAL [None]
  - DIARRHOEA [None]
  - FATIGUE [None]
  - HAEMATOCRIT DECREASED [None]
  - HAEMODIALYSIS [None]
  - HAEMOGLOBIN DECREASED [None]
  - HYPERKALAEMIA [None]
  - PLATELET COUNT DECREASED [None]
  - PROTEIN URINE PRESENT [None]
  - RASH [None]
  - RED BLOOD CELL COUNT DECREASED [None]
  - RENAL FAILURE [None]
  - WHITE BLOOD CELL COUNT INCREASED [None]
